FAERS Safety Report 5557896-X (Version None)
Quarter: 2007Q4

REPORT INFORMATION
  Report Type: 
  Country: None (occurrence: None)
  Receive Date: 20071214
  Receipt Date: 20071210
  Transmission Date: 20080405
  Serious: Yes (Life-Threatening)
  Sender: FDA-Public Use
  Company Number: NO-ASTRAZENECA-2007SE03229

PATIENT
  Age: 31574 Day
  Sex: Female

DRUGS (2)
  1. NAROPIN [Suspect]
     Indication: POSTOPERATIVE ANALGESIA
     Route: 050
     Dates: start: 20070604, end: 20070604
  2. MARCAINE [Suspect]
     Indication: ANAESTHETIC PREMEDICATION
     Route: 037
     Dates: start: 20070604, end: 20070604

REACTIONS (3)
  - HYPOTENSION [None]
  - OXYGEN SATURATION DECREASED [None]
  - SUPRAVENTRICULAR TACHYCARDIA [None]
